FAERS Safety Report 14293995 (Version 3)
Quarter: 2018Q1

REPORT INFORMATION
  Report Type: Report from Study
  Country: US (occurrence: US)
  Receive Date: 20171217
  Receipt Date: 20180312
  Transmission Date: 20180509
  Serious: No
  Sender: FDA-Public Use
  Company Number: PHEH2017US040156

PATIENT
  Sex: Female

DRUGS (1)
  1. ILARIS [Suspect]
     Active Substance: CANAKINUMAB
     Indication: CRYOPYRIN ASSOCIATED PERIODIC SYNDROME
     Dosage: 30 MG, EVERY 4 WEEKS
     Route: 058

REACTIONS (3)
  - Influenza [Unknown]
  - Pharyngitis streptococcal [Unknown]
  - Pyrexia [Unknown]
